FAERS Safety Report 5638625-8 (Version None)
Quarter: 2008Q1

REPORT INFORMATION
  Report Type: 
  Country: None (occurrence: None)
  Receive Date: 20080226
  Receipt Date: 20080214
  Transmission Date: 20080703
  Serious: Yes (Congenital Anomaly)
  Sender: FDA-Public Use
  Company Number: JP-ELI_LILLY_AND_COMPANY-JP200802000748

PATIENT
  Sex: Male
  Weight: 3.046 kg

DRUGS (3)
  1. ZYPREXA [Suspect]
     Indication: PERSONALITY DISORDER
     Dosage: 2.5 MG, DAILY (1/D)
     Route: 064
     Dates: start: 20011101, end: 20071225
  2. HALCION [Concomitant]
     Indication: INSOMNIA
     Dosage: 0.25 MG, DAILY (1/D)
     Route: 064
     Dates: end: 20070401
  3. MYSLEE [Concomitant]
     Route: 064

REACTIONS (3)
  - CEPHALO-PELVIC DISPROPORTION [None]
  - CLEFT PALATE [None]
  - DRUG EXPOSURE DURING PREGNANCY [None]
